FAERS Safety Report 11737590 (Version 3)
Quarter: 2016Q1

REPORT INFORMATION
  Report Type: Spontaneous
  Country: US (occurrence: US)
  Receive Date: 20151113
  Receipt Date: 20160122
  Transmission Date: 20160525
  Serious: No
  Sender: FDA-Public Use
  Company Number: US-009507513-1510USA014972

PATIENT
  Age: 38 Year
  Sex: Male
  Weight: 119.27 kg

DRUGS (3)
  1. TIVICAY [Concomitant]
     Active Substance: DOLUTEGRAVIR SODIUM
  2. DIFLUNISAL. [Concomitant]
     Active Substance: DIFLUNISAL
  3. PEGINTRON [Suspect]
     Active Substance: PEGINTERFERON ALFA-2B
     Indication: KAPOSI^S SARCOMA AIDS RELATED
     Dosage: 120 MICROGRAM WEEKLY
     Route: 065
     Dates: start: 20140918

REACTIONS (3)
  - Product use issue [Unknown]
  - Drug dose omission [Unknown]
  - No adverse event [Unknown]

NARRATIVE: CASE EVENT DATE: 20140918
